FAERS Safety Report 7724862-5 (Version None)
Quarter: 2011Q3

REPORT INFORMATION
  Report Type: 
  Country: None (occurrence: None)
  Receive Date: 20110829
  Receipt Date: 20110829
  Transmission Date: 20111222
  Serious: No
  Sender: FDA-Public Use
  Company Number: 1022556-2011-00020

PATIENT
  Sex: Female

DRUGS (1)
  1. ICY HOT CREAM - GENERIC [Suspect]
     Indication: MYALGIA
     Dosage: TOPICAL, ONCE
     Route: 061

REACTIONS (4)
  - BURNS SECOND DEGREE [None]
  - SKIN EXFOLIATION [None]
  - BURNS THIRD DEGREE [None]
  - SCAR [None]
